FAERS Safety Report 8742833 (Version 2)
Quarter: 2013Q4

REPORT INFORMATION
  Report Type: Report from Study
  Country: JP (occurrence: JP)
  Receive Date: 20120824
  Receipt Date: 20131106
  Transmission Date: 20140711
  Serious: Yes (Other)
  Sender: FDA-Public Use
  Company Number: JP-MERCK-1208JPN004801

PATIENT
  Age: 62 Year
  Sex: Female
  Weight: 46 kg

DRUGS (13)
  1. PEGINTRON [Suspect]
     Indication: HEPATITIS C
     Dosage: 1.5 MICROGRAM PER KILOGRAM, QW
     Route: 058
     Dates: start: 20120606
  2. REBETOL [Suspect]
     Indication: HEPATITIS C
     Dosage: 600 MG, QD
     Route: 048
     Dates: start: 20120606, end: 20120619
  3. REBETOL [Suspect]
     Dosage: 400 MG, QD
     Route: 048
     Dates: start: 20120620
  4. TELAVIC [Suspect]
     Indication: HEPATITIS C
     Dosage: 1500 MILLIGRAMS, QD
     Route: 048
     Dates: start: 20120606
  5. NORVASC [Concomitant]
     Indication: HYPERTENSION
     Dosage: 5 MG, QD
     Route: 048
  6. MAGLAX [Concomitant]
     Indication: CONSTIPATION
     Dosage: 1.2 G, QD
     Route: 048
  7. MUCOSTA [Concomitant]
     Indication: GASTRIC ULCER
     Dosage: 300 MG, QD
     Route: 048
  8. DEPAS [Concomitant]
     Indication: INSOMNIA
     Dosage: 1 MG, QD
     Route: 048
  9. LEXOTAN [Concomitant]
     Indication: INSOMNIA
     Dosage: 1 MG, QD
     Route: 048
  10. LIVALO [Concomitant]
     Indication: HYPERLIPIDAEMIA
     Dosage: 2 MG, QD
     Route: 048
  11. EPADEL S [Concomitant]
     Indication: HYPERLIPIDAEMIA
     Dosage: 1800 MILLIGRAMS, QD
     Route: 048
  12. FEROTYM [Concomitant]
     Indication: IRON DEFICIENCY ANAEMIA
     Dosage: 100 MG, QD
     Route: 048
  13. CLARITIN REDITABS TABLETS 10 MG [Concomitant]
     Indication: PROPHYLAXIS
     Dosage: 10 MG, QD
     Route: 048

REACTIONS (1)
  - Anaemia [Not Recovered/Not Resolved]
